FAERS Safety Report 10210112 (Version 1)
Quarter: 2014Q2

REPORT INFORMATION
  Report Type: Spontaneous
  Country: US (occurrence: US)
  Receive Date: 20140602
  Receipt Date: 20140602
  Transmission Date: 20141212
  Serious: No
  Sender: FDA-Public Use
  Company Number: US-009507513-1405USA015781

PATIENT
  Sex: Female

DRUGS (8)
  1. MIRALAX [Suspect]
     Indication: PRODUCT USED FOR UNKNOWN INDICATION
     Dosage: UNK, BID
     Route: 048
     Dates: end: 20140220
  2. LINZESS [Suspect]
     Indication: CONSTIPATION
     Dosage: 290 MICROGRAM, QD
     Route: 048
     Dates: start: 20140207
  3. HYDROCHLOROTHIAZIDE [Suspect]
     Indication: PRODUCT USED FOR UNKNOWN INDICATION
     Dosage: UNK, BID
     Dates: end: 20140220
  4. SENOKOT (SENNA) [Concomitant]
     Indication: PRODUCT USED FOR UNKNOWN INDICATION
     Dosage: UNK, UNKNOWN
  5. OXYCONTIN [Concomitant]
     Indication: TORTICOLLIS
     Dosage: UNK, UNKNOWN
  6. OXYCODONE [Concomitant]
     Indication: TORTICOLLIS
     Dosage: UNK, UNKNOWN
  7. VALIUM [Concomitant]
     Indication: TORTICOLLIS
     Dosage: UNK, UNKNOWN
  8. DULCOLAX [Concomitant]
     Indication: PRODUCT USED FOR UNKNOWN INDICATION
     Dosage: UNK, UNKNOWN

REACTIONS (2)
  - Blood pressure decreased [Recovered/Resolved]
  - Inappropriate schedule of drug administration [Unknown]
